FAERS Safety Report 19093585 (Version 1)
Quarter: 2021Q2

REPORT INFORMATION
  Report Type: Report from Study
  Country: AR (occurrence: AR)
  Receive Date: 20210405
  Receipt Date: 20210405
  Transmission Date: 20210717
  Serious: Yes (Death, Hospitalization)
  Sender: FDA-Public Use
  Company Number: AR-INCYTE CORPORATION-2019IN013691

PATIENT

DRUGS (1)
  1. JAKAVI [Suspect]
     Active Substance: RUXOLITINIB
     Indication: MYELOFIBROSIS
     Dosage: 40 MG, DAILY
     Route: 065
     Dates: start: 20160501

REACTIONS (10)
  - Mobility decreased [Fatal]
  - Urinary tract infection [Unknown]
  - Myelofibrosis [Fatal]
  - Muscle strength abnormal [Fatal]
  - Anaemia [Unknown]
  - Depressed mood [Fatal]
  - Back pain [Unknown]
  - Infection [Fatal]
  - Decreased appetite [Fatal]
  - Asthenia [Fatal]

NARRATIVE: CASE EVENT DATE: 201901
